FAERS Safety Report 5417899-2 (Version None)
Quarter: 2007Q3

REPORT INFORMATION
  Report Type: 
  Country: None (occurrence: None)
  Receive Date: 20070817
  Receipt Date: 20070807
  Transmission Date: 20080115
  Serious: Yes (Other)
  Sender: FDA-Public Use
  Company Number: US-JNJFOC-20070605234

PATIENT
  Sex: Female
  Weight: 57.61 kg

DRUGS (5)
  1. REMICADE [Suspect]
     Indication: CROHN'S DISEASE
     Route: 042
  2. ASACOL [Concomitant]
     Indication: CROHN'S DISEASE
  3. LEVSIN [Concomitant]
     Indication: CROHN'S DISEASE
  4. PEPCID [Concomitant]
     Indication: CROHN'S DISEASE
  5. IMODIUM [Concomitant]
     Indication: CROHN'S DISEASE
     Dosage: AS NEEDED.

REACTIONS (1)
  - LUPUS-LIKE SYNDROME [None]
